FAERS Safety Report 6115734-0 (Version None)
Quarter: 2009Q1

REPORT INFORMATION
  Report Type: 
  Country: None (occurrence: None)
  Receive Date: 20090313
  Receipt Date: 20090310
  Transmission Date: 20090719
  Serious: Yes (Hospitalization, Other)
  Sender: FDA-Public Use
  Company Number: US-JNJCH-2009006705

PATIENT
  Age: 69 Year
  Sex: Male
  Weight: 82.1 kg

DRUGS (1)
  1. KIRKLAND SIGNATURE 5% [Suspect]
     Indication: ALOPECIA
     Dosage: TEXT:UNSPECIFIED TWICE DAILY
     Route: 061

REACTIONS (2)
  - CARDIAC FAILURE CONGESTIVE [None]
  - CARDIAC FIBRILLATION [None]
